FAERS Safety Report 6074663-1 (Version None)
Quarter: 2009Q1

REPORT INFORMATION
  Report Type: 
  Country: None (occurrence: None)
  Receive Date: 20090209
  Receipt Date: 20090126
  Transmission Date: 20090719
  Serious: Yes (Other)
  Sender: FDA-Public Use
  Company Number: 230458K09USA

PATIENT
  Age: 30 Year
  Sex: Female
  Weight: 98 kg

DRUGS (3)
  1. REBIF [Suspect]
     Indication: MULTIPLE SCLEROSIS
     Dosage: 44 MCG, 3 IN 1 WEEKS, SUBCUTANEOUS
     Route: 058
     Dates: start: 20040816
  2. LORTAB (VICODIN) [Concomitant]
  3. NEURONTIN [Concomitant]

REACTIONS (9)
  - ABDOMINAL DISTENSION [None]
  - ASTHENIA [None]
  - CONSTIPATION [None]
  - IUCD COMPLICATION [None]
  - MYALGIA [None]
  - OVARIAN CYST RUPTURED [None]
  - RED BLOOD CELL COUNT DECREASED [None]
  - TOOTH FRACTURE [None]
  - WEIGHT INCREASED [None]
